FAERS Safety Report 21500463 (Version 2)
Quarter: 2022Q4

REPORT INFORMATION
  Report Type: Spontaneous
  Country: US (occurrence: US)
  Receive Date: 20221025
  Receipt Date: 20221128
  Transmission Date: 20230113
  Serious: No
  Sender: FDA-Public Use
  Company Number: US-ABBVIE-4142747

PATIENT
  Age: 47 Year
  Sex: Female

DRUGS (4)
  1. ORILISSA [Suspect]
     Active Substance: ELAGOLIX SODIUM
     Indication: Product used for unknown indication
     Dosage: FORM STRENGTH 300 MILLIGRAM
     Route: 048
     Dates: start: 20210907, end: 20210911
  2. Covid-19 vaccine [Concomitant]
     Indication: COVID-19 immunisation
     Dosage: FIRST DOSE?ONCE
     Route: 030
  3. Covid-19 vaccine [Concomitant]
     Indication: COVID-19 immunisation
     Dosage: SECOND DOSE?ONCE
     Route: 030
  4. Covid-19 vaccine [Concomitant]
     Indication: COVID-19 immunisation
     Dosage: BOOSTER DOSE?ONCE
     Route: 030

REACTIONS (9)
  - Dyspnoea [Unknown]
  - Muscle spasms [Unknown]
  - Vomiting [Recovered/Resolved]
  - Mobility decreased [Unknown]
  - Nausea [Recovered/Resolved]
  - Back pain [Recovering/Resolving]
  - Vulvovaginal burning sensation [Not Recovered/Not Resolved]
  - Headache [Unknown]
  - Vulvovaginal discomfort [Not Recovered/Not Resolved]

NARRATIVE: CASE EVENT DATE: 20220907
